FAERS Safety Report 18180565 (Version 1)
Quarter: 2020Q3

REPORT INFORMATION
  Report Type: Spontaneous
  Country: US (occurrence: US)
  Receive Date: 20200821
  Receipt Date: 20200821
  Transmission Date: 20201103
  Serious: Yes (Other)
  Sender: FDA-Public Use
  Company Number: None

PATIENT
  Age: 66 Year
  Sex: Male

DRUGS (1)
  1. YESCARTA [Suspect]
     Active Substance: AXICABTAGENE CILOLEUCEL
     Indication: DIFFUSE LARGE B-CELL LYMPHOMA
     Dates: start: 20200713, end: 20200713

REACTIONS (4)
  - Dizziness [None]
  - Neurotoxicity [None]
  - Chorioretinopathy [None]
  - Vision blurred [None]

NARRATIVE: CASE EVENT DATE: 20200720
